FAERS Safety Report 15240491 (Version 2)
Quarter: 2018Q3

REPORT INFORMATION
  Report Type: Spontaneous
  Country: US (occurrence: US)
  Receive Date: 20180804
  Receipt Date: 20180912
  Transmission Date: 20181010
  Serious: No
  Sender: FDA-Public Use
  Company Number: US-ASTRAZENECA-2018SE95019

PATIENT
  Sex: Male
  Weight: 103 kg

DRUGS (2)
  1. BYDUREON BCISE [Suspect]
     Active Substance: EXENATIDE
     Indication: TYPE 2 DIABETES MELLITUS
     Route: 058
     Dates: start: 2018
  2. INSULIN [Concomitant]
     Active Substance: INSULIN NOS

REACTIONS (4)
  - Injection site pain [Unknown]
  - Injection site nodule [Recovering/Resolving]
  - Intentional product misuse [Unknown]
  - Device issue [Unknown]
